FAERS Safety Report 6242074-1 (Version None)
Quarter: 2009Q2

REPORT INFORMATION
  Report Type: 
  Country: None (occurrence: None)
  Receive Date: 20090622
  Receipt Date: 20090610
  Transmission Date: 20091009
  Serious: Yes (Other)
  Sender: FDA-Public Use
  Company Number: 090615-0000744

PATIENT
  Age: 15 Year
  Sex: Male

DRUGS (3)
  1. COSMEGEN [Suspect]
     Indication: UNDIFFERENTIATED SARCOMA
     Dosage: 0.5 MG;QD
  2. VINCRISTINE [Suspect]
     Indication: UNDIFFERENTIATED SARCOMA
     Dosage: 2 MG;QD
  3. CYCLOPHOSPHAMIDE [Suspect]
     Indication: UNDIFFERENTIATED SARCOMA
     Dosage: 2.2 MG;QD

REACTIONS (5)
  - BONE MARROW FAILURE [None]
  - HEPATIC NEOPLASM [None]
  - LIVER TRANSPLANT [None]
  - NEOPLASM RECURRENCE [None]
  - SEPSIS [None]
